FAERS Safety Report 24339420 (Version 2)
Quarter: 2024Q4

REPORT INFORMATION
  Report Type: Spontaneous
  Country: US (occurrence: US)
  Receive Date: 20240919
  Receipt Date: 20241003
  Transmission Date: 20250115
  Serious: Yes (Hospitalization)
  Sender: TEVA
  Company Number: US-TEVA-VS-3243809

PATIENT
  Age: 30 Year
  Sex: Female

DRUGS (8)
  1. IBUPROFEN [Suspect]
     Active Substance: IBUPROFEN
     Indication: Product used for unknown indication
     Route: 065
  2. METFORMIN HYDROCHLORIDE [Concomitant]
     Active Substance: METFORMIN HYDROCHLORIDE
     Indication: Ovarian hyperstimulation syndrome
     Route: 065
  3. BROMOCRIPTINE MESYLATE [Concomitant]
     Active Substance: BROMOCRIPTINE MESYLATE
     Indication: Ovarian hyperstimulation syndrome
     Route: 065
  4. MENOTROPINS [Concomitant]
     Active Substance: MENOTROPINS
     Indication: Ovulation induction
     Route: 065
  5. ONDANSETRON [Suspect]
     Active Substance: ONDANSETRON
     Indication: Nausea
     Route: 065
  6. FOLLITROPIN ALFA [Concomitant]
     Active Substance: FOLLITROPIN ALFA
     Indication: Ovulation induction
     Route: 065
  7. LETROZOLE [Suspect]
     Active Substance: LETROZOLE
     Indication: Ovulation induction
     Dosage: PER NIGHT
     Route: 065
  8. GANIRELIX ACETATE [Concomitant]
     Active Substance: GANIRELIX ACETATE
     Indication: Ovulation induction
     Route: 065

REACTIONS (2)
  - Gastritis [Unknown]
  - Drug ineffective [Unknown]
